FAERS Safety Report 5137118-4 (Version None)
Quarter: 2006Q4

REPORT INFORMATION
  Report Type: 
  Country: None (occurrence: None)
  Receive Date: 20061030
  Receipt Date: 20030814
  Transmission Date: 20070319
  Serious: No
  Sender: FDA-Public Use
  Company Number: US-GLAXOSMITHKLINE-A0421243A

PATIENT
  Age: 79 Year
  Sex: Male

DRUGS (9)
  1. SERETIDE [Suspect]
     Indication: CHRONIC OBSTRUCTIVE PULMONARY DISEASE
     Dosage: 2PUFF TWICE PER DAY
     Route: 055
     Dates: start: 20020917
  2. VITAMIN E [Concomitant]
  3. SELENIUM SULFIDE [Concomitant]
  4. PROSTATE FORMULA [Concomitant]
  5. ASPIRIN [Concomitant]
  6. ADVAIR HFA [Suspect]
     Indication: CHRONIC OBSTRUCTIVE PULMONARY DISEASE
     Route: 055
  7. MULTI-VITAMIN [Concomitant]
  8. ACTONEL [Concomitant]
  9. AMBIEN [Concomitant]

REACTIONS (1)
  - DYSPHONIA [None]
